FAERS Safety Report 20684177 (Version 1)
Quarter: 2022Q2

REPORT INFORMATION
  Report Type: Spontaneous
  Country: AR (occurrence: AR)
  Receive Date: 20220407
  Receipt Date: 20220407
  Transmission Date: 20220721
  Serious: Yes (Other)
  Sender: FDA-Public Use
  Company Number: AR-SA-2022SA105033

PATIENT
  Sex: Male

DRUGS (1)
  1. VIGABATRIN [Suspect]
     Active Substance: VIGABATRIN
     Indication: Infantile spasms
     Dosage: 175 MG/KG, QD
     Route: 065

REACTIONS (2)
  - Magnetic resonance imaging head abnormal [Unknown]
  - Cerebral disorder [Unknown]
